FAERS Safety Report 23637008 (Version 2)
Quarter: 2024Q2

REPORT INFORMATION
  Report Type: Spontaneous
  Country: FR (occurrence: None)
  Receive Date: 20240315
  Receipt Date: 20240403
  Transmission Date: 20240715
  Serious: Yes (Hospitalization, Other)
  Sender: FDA-Public Use
  Company Number: 2024A058171

PATIENT
  Age: 0 Day
  Sex: Female
  Weight: 2 kg

DRUGS (5)
  1. SYMBICORT [Suspect]
     Active Substance: BUDESONIDE\FORMOTEROL FUMARATE DIHYDRATE
     Indication: Asthma
     Dosage: 400 MICROGRAMS PER INHALATION UNKNOWN UNKNOWN
     Route: 064
  2. BRICANYL [Suspect]
     Active Substance: TERBUTALINE SULFATE
     Indication: Asthma
     Dosage: UNK
     Route: 064
  3. NUCALA [Suspect]
     Active Substance: MEPOLIZUMAB
     Indication: Nasal polyps
     Dosage: 100.0MG UNKNOWN
     Route: 064
     Dates: start: 20190301, end: 20210621
  4. PREDNISOLONE [Suspect]
     Active Substance: PREDNISOLONE
     Indication: Nasal polyps
     Dosage: 100.0MG UNKNOWN
     Route: 064
     Dates: start: 20220122, end: 20220215
  5. FLUTICASONE FUROATE [Suspect]
     Active Substance: FLUTICASONE FUROATE
     Dosage: UNK

REACTIONS (4)
  - Foetal growth restriction [Recovered/Resolved]
  - Maternal exposure during pregnancy [Recovered/Resolved]
  - Maternal exposure before pregnancy [Recovered/Resolved]
  - Foetal exposure during pregnancy [Unknown]

NARRATIVE: CASE EVENT DATE: 20210621
